FAERS Safety Report 10235828 (Version 1)
Quarter: 2014Q2

REPORT INFORMATION
  Report Type: Spontaneous
  Country: US (occurrence: None)
  Receive Date: 20140612
  Receipt Date: 20140612
  Transmission Date: 20141212
  Serious: Yes (Hospitalization)
  Sender: FDA-Public Use
  Company Number: None

PATIENT
  Sex: Male
  Weight: 68.6 kg

DRUGS (2)
  1. SOVALDI 400 MG GILEAD [Suspect]
     Indication: HEPATITIS C
     Route: 048
     Dates: start: 20140306
  2. OLYSIO 150MG JASSEN [Suspect]
     Indication: HEPATITIS C
     Route: 048
     Dates: start: 20140306

REACTIONS (1)
  - Groin pain [None]
